FAERS Safety Report 23980472 (Version 1)
Quarter: 2024Q2

REPORT INFORMATION
  Report Type: Spontaneous
  Country: GT (occurrence: GT)
  Receive Date: 20240617
  Receipt Date: 20240617
  Transmission Date: 20240716
  Serious: Yes (Death)
  Sender: FDA-Public Use
  Company Number: GT-002147023-NVSC2024GT125248

PATIENT
  Age: 23 Year
  Sex: Female

DRUGS (1)
  1. GLIVEC [Suspect]
     Active Substance: IMATINIB MESYLATE
     Indication: Chronic myeloid leukaemia
     Dosage: 400 MG, (1 X 400 MG)
     Route: 065

REACTIONS (4)
  - Death [Fatal]
  - Swelling [Unknown]
  - Abdominal pain upper [Unknown]
  - Stomach mass [Unknown]

NARRATIVE: CASE EVENT DATE: 20240121
